FAERS Safety Report 18130030 (Version 5)
Quarter: 2020Q3

REPORT INFORMATION
  Report Type: Spontaneous
  Country: IN (occurrence: IN)
  Receive Date: 20200810
  Receipt Date: 20200911
  Transmission Date: 20201103
  Serious: Yes (Life-Threatening, Hospitalization, Other)
  Sender: FDA-Public Use
  Company Number: IN-PFIZER INC-2020297129

PATIENT
  Age: 28 Year
  Sex: Female

DRUGS (1)
  1. AMLODIPINE BESILATE [Suspect]
     Active Substance: AMLODIPINE BESYLATE
     Dosage: 80 DFS X 5 MG EACH

REACTIONS (11)
  - Ventricular hypokinesia [Recovering/Resolving]
  - Pulmonary oedema [Recovering/Resolving]
  - Ejection fraction decreased [Recovering/Resolving]
  - Hypotension [Recovering/Resolving]
  - Tachypnoea [Recovering/Resolving]
  - Somnolence [Recovering/Resolving]
  - Suicidal ideation [Recovering/Resolving]
  - Vomiting [Recovering/Resolving]
  - Sinus tachycardia [Recovering/Resolving]
  - Overdose [Recovering/Resolving]
  - Dizziness [Recovering/Resolving]
